FAERS Safety Report 4503791-4 (Version None)
Quarter: 2004Q4

REPORT INFORMATION
  Report Type: 
  Country: None (occurrence: None)
  Receive Date: 20041115
  Receipt Date: 20041020
  Transmission Date: 20050328
  Serious: Yes (Hospitalization, Disabling)
  Sender: FDA-Public Use
  Company Number: 2004SE04852

PATIENT
  Age: 53 Year
  Sex: Female

DRUGS (4)
  1. MARCAINE [Suspect]
     Indication: SPINAL ANAESTHESIA
     Dosage: 15 MG ONCE IT
     Route: 037
     Dates: start: 20010919, end: 20010919
  2. PROPOFOL [Concomitant]
  3. CARBOCAINE [Concomitant]
  4. TAZOCIN [Concomitant]

REACTIONS (9)
  - ALLODYNIA [None]
  - CAUDA EQUINA SYNDROME [None]
  - DEPRESSION [None]
  - DIFFICULTY IN WALKING [None]
  - FALL [None]
  - INSOMNIA [None]
  - INTERVERTEBRAL DISC DEGENERATION [None]
  - INTERVERTEBRAL DISC PROTRUSION [None]
  - SUICIDE ATTEMPT [None]
